FAERS Safety Report 5825143-7 (Version None)
Quarter: 2008Q3

REPORT INFORMATION
  Report Type: 
  Country: None (occurrence: None)
  Receive Date: 20080723
  Receipt Date: 20080708
  Transmission Date: 20090109
  Serious: Yes (Hospitalization, Other)
  Sender: FDA-Public Use
  Company Number: 2008S1009427

PATIENT
  Age: 61 Year
  Sex: Male

DRUGS (7)
  1. AMLODIPINE BESYLATE [Suspect]
     Indication: HYPERTENSION
     Dosage: 5 MG;DAILY;ORAL
     Route: 048
     Dates: start: 20071203, end: 20071214
  2. ESOMEPRAZOLE MAGNESIUM [Concomitant]
  3. FLUOXETINE [Concomitant]
  4. ASPIRIN [Concomitant]
  5. NIASPAN [Concomitant]
  6. LESCOL [Concomitant]
  7. OMEPRAZOLE [Concomitant]

REACTIONS (15)
  - ASTHENIA [None]
  - BLOOD GLUCOSE DECREASED [None]
  - CHILLS [None]
  - CHROMATURIA [None]
  - CONDITION AGGRAVATED [None]
  - FALL [None]
  - FATIGUE [None]
  - GOUT [None]
  - HEPATIC FAILURE [None]
  - HYPERHIDROSIS [None]
  - LETHARGY [None]
  - MALAISE [None]
  - NIGHT SWEATS [None]
  - VIRAL INFECTION [None]
  - VOMITING [None]
